FAERS Safety Report 8058377-4 (Version None)
Quarter: 2012Q1

REPORT INFORMATION
  Report Type: 
  Country: None (occurrence: None)
  Receive Date: 20120120
  Receipt Date: 20120117
  Transmission Date: 20120608
  Serious: Yes (Death, Hospitalization)
  Sender: FDA-Public Use
  Company Number: US-AMGEN-USASP2012002532

PATIENT
  Sex: Male

DRUGS (1)
  1. NEULASTA [Suspect]
     Indication: CHEMOTHERAPY
     Dosage: 6 MG, ONE TIME DOSE
     Route: 058
     Dates: start: 20110322, end: 20110322

REACTIONS (3)
  - METASTATIC MALIGNANT MELANOMA [None]
  - METASTASES TO PERITONEUM [None]
  - NEOPLASM PROGRESSION [None]
